FAERS Safety Report 23214644 (Version 1)
Quarter: 2023Q4

REPORT INFORMATION
  Report Type: Spontaneous
  Country: US (occurrence: US)
  Receive Date: 20231121
  Receipt Date: 20231121
  Transmission Date: 20240109
  Serious: Yes (Hospitalization, Other)
  Sender: FDA-Public Use
  Company Number: US-JNJFOC-20231141284

PATIENT
  Age: 56 Year
  Sex: Male

DRUGS (1)
  1. STELARA [Suspect]
     Active Substance: USTEKINUMAB
     Indication: Crohn^s disease
     Route: 058
     Dates: start: 2019

REACTIONS (3)
  - Acquired immunodeficiency syndrome [Unknown]
  - Pneumocystis jirovecii pneumonia [Unknown]
  - Urinary tract infection [Not Recovered/Not Resolved]
